FAERS Safety Report 7853230 (Version 4)
Quarter: 2014Q1

REPORT INFORMATION
  Report Type: Spontaneous
  Country: IE (occurrence: IE)
  Receive Date: 20110314
  Receipt Date: 20140123
  Transmission Date: 20141002
  Serious: Yes (Hospitalization, Other)
  Sender: FDA-Public Use
  Company Number: IE-BIOGENIDEC-2011BI008218

PATIENT
  Age: 37 Year
  Sex: Female

DRUGS (4)
  1. TYSABRI [Suspect]
     Indication: PRODUCT USED FOR UNKNOWN INDICATION
     Route: 042
     Dates: start: 20070102, end: 20110208
  2. AVONEX [Concomitant]
  3. DETRUSITOL [Concomitant]
  4. GLATIRAMER ACETATE [Concomitant]

REACTIONS (2)
  - Intraductal proliferative breast lesion [Not Recovered/Not Resolved]
  - Metastatic neoplasm [Not Recovered/Not Resolved]
